FAERS Safety Report 5581528-8 (Version None)
Quarter: 2008Q1

REPORT INFORMATION
  Report Type: 
  Country: None (occurrence: None)
  Receive Date: 20080104
  Receipt Date: 20070531
  Transmission Date: 20080703
  Serious: Yes (Other)
  Sender: FDA-Public Use
  Company Number: US-ASTRAZENECA-2006UW03811

PATIENT
  Age: 555 Month
  Sex: Male
  Weight: 118.6 kg

DRUGS (1)
  1. SEROQUEL [Suspect]
     Route: 048
     Dates: start: 20011101, end: 20050301

REACTIONS (2)
  - DIABETES MELLITUS [None]
  - PANCREATITIS [None]
